FAERS Safety Report 4577917-0 (Version None)
Quarter: 2005Q1

REPORT INFORMATION
  Report Type: 
  Country: None (occurrence: None)
  Receive Date: 20050127
  Receipt Date: 20040831
  Transmission Date: 20050727
  Serious: No
  Sender: FDA-Public Use
  Company Number: USA040876924

PATIENT
  Age: 15 Year
  Sex: Male
  Weight: 68 kg

DRUGS (3)
  1. STRATTERA [Suspect]
     Indication: ATTENTION DEFICIT/HYPERACTIVITY DISORDER
     Dosage: 40 MG/L IN THE MORNING
     Dates: start: 20040101
  2. PULMICORT [Concomitant]
  3. INDERAL (PROPANOLOL HYDROCHLORIDE) [Concomitant]

REACTIONS (8)
  - CHILLS [None]
  - DECREASED APPETITE [None]
  - DRUG INEFFECTIVE [None]
  - FATIGUE [None]
  - INSOMNIA [None]
  - MOOD SWINGS [None]
  - SOMNOLENCE [None]
  - VOMITING [None]
